FAERS Safety Report 17705867 (Version 1)
Quarter: 2020Q2

REPORT INFORMATION
  Report Type: Spontaneous
  Country: US (occurrence: US)
  Receive Date: 20200424
  Receipt Date: 20200424
  Transmission Date: 20200714
  Serious: Yes (Hospitalization, Other)
  Sender: FDA-Public Use
  Company Number: US-STRIDES ARCOLAB LIMITED-2020SP005053

PATIENT
  Age: 56 Year
  Sex: Female

DRUGS (2)
  1. ISOVUE 300 [Interacting]
     Active Substance: IOPAMIDOL
     Indication: COMPUTERISED TOMOGRAM
     Dosage: 125 MILLILITER,CONTRAST
     Route: 042
  2. HYDRALAZINE HCL [Suspect]
     Active Substance: HYDRALAZINE HYDROCHLORIDE
     Indication: PRODUCT USED FOR UNKNOWN INDICATION
     Dosage: UNK
     Route: 065

REACTIONS (9)
  - Toxicity to various agents [Recovered/Resolved]
  - Drug eruption [Recovered/Resolved]
  - Drug interaction [Unknown]
  - Dermatitis bullous [Recovered/Resolved]
  - Purpura [Recovered/Resolved]
  - Lupus-like syndrome [Unknown]
  - Papule [Recovered/Resolved]
  - Rash erythematous [Recovered/Resolved]
  - Scab [Recovered/Resolved]
